FAERS Safety Report 25453481 (Version 1)
Quarter: 2025Q2

REPORT INFORMATION
  Report Type: Spontaneous
  Country: CN (occurrence: CN)
  Receive Date: 20250619
  Receipt Date: 20250619
  Transmission Date: 20250717
  Serious: Yes (Hospitalization)
  Sender: ABBVIE
  Company Number: CN-ABBVIE-6331585

PATIENT
  Age: 69 Year
  Sex: Female
  Weight: 35 kg

DRUGS (2)
  1. VENETOCLAX [Suspect]
     Active Substance: VENETOCLAX
     Indication: Acute myeloid leukaemia
     Dosage: 1 TABLET
     Route: 048
     Dates: start: 20250530, end: 20250606
  2. DECITABINE [Suspect]
     Active Substance: DECITABINE
     Indication: Acute myeloid leukaemia
     Dosage: 25 MILLIGRAM INTRAVENOUS DRIP
     Dates: start: 20250530, end: 20250603

REACTIONS (3)
  - Platelet count decreased [Recovering/Resolving]
  - Gingival bleeding [Unknown]
  - Myelosuppression [Unknown]

NARRATIVE: CASE EVENT DATE: 20250601
